FAERS Safety Report 6511851-1 (Version None)
Quarter: 2009Q4

REPORT INFORMATION
  Report Type: 
  Country: None (occurrence: None)
  Receive Date: 20091222
  Receipt Date: 20091214
  Transmission Date: 20100525
  Serious: No
  Sender: FDA-Public Use
  Company Number: US-B.I. PHARMACEUTICALS,INC./RIDGEFIELD-2009-BP-14425BP

PATIENT
  Sex: Female

DRUGS (2)
  1. SPIRIVA [Suspect]
     Indication: DYSPNOEA
     Dosage: 18 MCG
     Route: 055
     Dates: start: 20091124
  2. LAMOTRIGINE [Concomitant]
     Indication: CONVULSION

REACTIONS (3)
  - CHEST DISCOMFORT [None]
  - EYE IRRITATION [None]
  - EYE PRURITUS [None]
